FAERS Safety Report 7344937-2 (Version None)
Quarter: 2011Q1

REPORT INFORMATION
  Report Type: 
  Country: None (occurrence: None)
  Receive Date: 20110310
  Receipt Date: 20110301
  Transmission Date: 20110831
  Serious: Yes (Hospitalization, Other)
  Sender: FDA-Public Use
  Company Number: US-JNJFOC-20110107965

PATIENT
  Sex: Male
  Weight: 96.62 kg

DRUGS (4)
  1. REMICADE [Suspect]
     Route: 042
  2. PREDNISONE [Concomitant]
     Indication: COLITIS ULCERATIVE
  3. REMICADE [Suspect]
     Indication: COLITIS ULCERATIVE
     Route: 042
  4. AZATHIOPRINE [Concomitant]
     Indication: COLITIS ULCERATIVE

REACTIONS (4)
  - URTICARIA [None]
  - ADVERSE EVENT [None]
  - FACE OEDEMA [None]
  - ENDOCARDITIS [None]
